FAERS Safety Report 9332380 (Version 1)
Quarter: 2013Q2

REPORT INFORMATION
  Report Type: Report from Study
  Country: AR (occurrence: AR)
  Receive Date: 20130606
  Receipt Date: 20130606
  Transmission Date: 20140414
  Serious: Yes (Other)
  Sender: FDA-Public Use
  Company Number: PHHY2013AR056573

PATIENT
  Sex: Female
  Weight: 50 kg

DRUGS (1)
  1. GILENYA [Suspect]
     Indication: MULTIPLE SCLEROSIS
     Dosage: 0.5 MG, QD
     Route: 048
     Dates: start: 20130313

REACTIONS (2)
  - Blood cholesterol increased [Not Recovered/Not Resolved]
  - Bronchitis [Recovering/Resolving]
